FAERS Safety Report 14895709 (Version 2)
Quarter: 2018Q2

REPORT INFORMATION
  Report Type: Spontaneous
  Country: US (occurrence: US)
  Receive Date: 20180515
  Receipt Date: 20180622
  Transmission Date: 20180711
  Serious: No
  Sender: FDA-Public Use
  Company Number: US-ASTRAZENECA-2018SE51620

PATIENT
  Sex: Female

DRUGS (1)
  1. IMFINZI [Suspect]
     Active Substance: DURVALUMAB
     Indication: LUNG CARCINOMA CELL TYPE UNSPECIFIED STAGE III
     Dosage: UNK, EVERY TWO WEEKS
     Route: 042
     Dates: start: 201801

REACTIONS (9)
  - Haematochezia [Unknown]
  - Off label use [Unknown]
  - Product physical issue [Unknown]
  - Muscle spasms [Unknown]
  - Circumstance or information capable of leading to medication error [Unknown]
  - Headache [Unknown]
  - Mucous stools [Unknown]
  - Migraine with aura [Unknown]
  - Feeling abnormal [Unknown]
